FAERS Safety Report 11282386 (Version 1)
Quarter: 2015Q3

REPORT INFORMATION
  Report Type: Spontaneous
  Country: US (occurrence: US)
  Receive Date: 20150720
  Receipt Date: 20150720
  Transmission Date: 20151125
  Serious: No
  Sender: FDA-Public Use
  Company Number: US-AMGEN-USASP2015071043

PATIENT
  Age: 61 Year
  Sex: Male

DRUGS (1)
  1. ENBREL [Suspect]
     Active Substance: ETANERCEPT
     Indication: PRODUCT USED FOR UNKNOWN INDICATION
     Dosage: 50 MG, WEEKLY
     Route: 058
     Dates: start: 201312

REACTIONS (6)
  - Influenza like illness [Recovered/Resolved]
  - Blepharospasm [Unknown]
  - Anaemia [Unknown]
  - Unevaluable event [Unknown]
  - Feeling abnormal [Unknown]
  - C-reactive protein abnormal [Recovering/Resolving]
